FAERS Safety Report 9177787 (Version 1)
Quarter: 2013Q1

REPORT INFORMATION
  Report Type: Report from Study
  Country: IT (occurrence: IT)
  Receive Date: 20130321
  Receipt Date: 20130321
  Transmission Date: 20140127
  Serious: Yes (Hospitalization)
  Sender: FDA-Public Use
  Company Number: PHHO2013IT001477

PATIENT
  Age: 41 Year
  Sex: Female
  Weight: 62.5 kg

DRUGS (3)
  1. SOM230 [Suspect]
     Dosage: 0.6 MG, BID
     Route: 058
     Dates: start: 20120912
  2. EFEXOR [Concomitant]
     Indication: DEPRESSION
     Dosage: 37.5 MG, UNK
     Route: 048
     Dates: start: 2011
  3. CALCIUM + VIT D [Concomitant]
     Indication: OSTEOPOROSIS
     Dosage: 250 MG PLUS 300 U
     Route: 048
     Dates: start: 201206

REACTIONS (1)
  - Biliary colic [Recovered/Resolved with Sequelae]
